FAERS Safety Report 12953082 (Version 5)
Quarter: 2017Q2

REPORT INFORMATION
  Report Type: Spontaneous
  Country: US (occurrence: US)
  Receive Date: 20161117
  Receipt Date: 20170508
  Transmission Date: 20170830
  Serious: Yes (Death, Hospitalization, Other)
  Sender: FDA-Public Use
  Company Number: US-ACTELION-A-US2016-145586

PATIENT
  Age: 53 Year
  Sex: Female
  Weight: 56.69 kg

DRUGS (4)
  1. COUMADIN [Concomitant]
     Active Substance: WARFARIN SODIUM
  2. LETAIRIS [Concomitant]
     Active Substance: AMBRISENTAN
  3. VELETRI [Suspect]
     Active Substance: EPOPROSTENOL
     Indication: PULMONARY ARTERIAL HYPERTENSION
     Dosage: 35 NG/KG, PER MIN
     Route: 042
     Dates: start: 20120213
  4. REVATIO [Concomitant]
     Active Substance: SILDENAFIL CITRATE

REACTIONS (4)
  - Oesophageal carcinoma [Unknown]
  - Death [Fatal]
  - Thrombosis [Unknown]
  - Bone cancer [Unknown]

NARRATIVE: CASE EVENT DATE: 20161222
